FAERS Safety Report 7358369-4 (Version None)
Quarter: 2011Q1

REPORT INFORMATION
  Report Type: 
  Country: None (occurrence: None)
  Receive Date: 20110314
  Receipt Date: 20110314
  Transmission Date: 20110831
  Serious: Yes (Death)
  Sender: FDA-Public Use
  Company Number: None

PATIENT
  Age: 63 Year
  Sex: Male
  Weight: 53.9 kg

DRUGS (2)
  1. OFATUMUMAB DOSE 2 2000 MG ON 3/2/2011 GSK [Suspect]
     Indication: CHRONIC LYMPHOCYTIC LEUKAEMIA
     Dates: start: 20110202
  2. OFATUMUMAB DOSE 1 300 MG ON 2/23/2011 GSK [Suspect]
     Indication: CHRONIC LYMPHOCYTIC LEUKAEMIA
     Dates: start: 20110223

REACTIONS (1)
  - CYTOMEGALOVIRUS TEST POSITIVE [None]
